FAERS Safety Report 18547079 (Version 2)
Quarter: 2021Q2

REPORT INFORMATION
  Report Type: Report from Study
  Country: US (occurrence: US)
  Receive Date: 20201125
  Receipt Date: 20210428
  Transmission Date: 20210717
  Serious: Yes (Other)
  Sender: FDA-Public Use
  Company Number: US-GILEAD-2020-0505853

PATIENT
  Age: 25 Year

DRUGS (3)
  1. R GEMOX [Concomitant]
     Dosage: 5 MONTHS POST CART
  2. AXICABTAGENE CILOLEUCEL [Suspect]
     Active Substance: AXICABTAGENE CILOLEUCEL
     Indication: B-CELL LYMPHOMA
     Route: 042
  3. PEMBROLIZUMAB. [Concomitant]
     Active Substance: PEMBROLIZUMAB
     Dosage: BETWEEN 4?5 MO AFTER CART

REACTIONS (1)
  - Cytokine release syndrome [Unknown]
